FAERS Safety Report 17516518 (Version 1)
Quarter: 2020Q1

REPORT INFORMATION
  Report Type: Spontaneous
  Country: FR (occurrence: FR)
  Receive Date: 20200309
  Receipt Date: 20200309
  Transmission Date: 20200409
  Serious: Yes (Other)
  Sender: FDA-Public Use
  Company Number: FR-VERTEX PHARMACEUTICALS-2020-004638

PATIENT
  Sex: Male

DRUGS (1)
  1. ORKAMBI [Suspect]
     Active Substance: IVACAFTOR\LUMACAFTOR
     Indication: CYSTIC FIBROSIS
     Dosage: LUMACAFTOR/IVACAFTOR
     Route: 048
     Dates: start: 201909

REACTIONS (1)
  - Suicide attempt [Unknown]

NARRATIVE: CASE EVENT DATE: 201910
